FAERS Safety Report 15824647 (Version 3)
Quarter: 2019Q1

REPORT INFORMATION
  Report Type: Report from Study
  Country: JP (occurrence: JP)
  Receive Date: 20190115
  Receipt Date: 20190307
  Transmission Date: 20190417
  Serious: Yes (Hospitalization, Other)
  Sender: FDA-Public Use
  Company Number: JP-ROCHE-2243438

PATIENT
  Age: 64 Year
  Sex: Male

DRUGS (17)
  1. DIART [Concomitant]
     Active Substance: AZOSEMIDE
     Indication: CARDIAC FAILURE
     Route: 048
  2. RITUXIMAB. [Suspect]
     Active Substance: RITUXIMAB
     Route: 041
     Dates: start: 20181024, end: 20181024
  3. MAGNESIUM OXIDE. [Concomitant]
     Active Substance: MAGNESIUM OXIDE
     Indication: CONSTIPATION PROPHYLAXIS
     Route: 065
  4. PREDNISOLONE. [Concomitant]
     Active Substance: PREDNISOLONE
     Indication: PEMPHIGUS
     Route: 048
  5. METGLUCO [Concomitant]
     Active Substance: METFORMIN HYDROCHLORIDE
     Indication: STEROID DIABETES
     Route: 048
  6. PREDONINE [Suspect]
     Active Substance: PREDNISOLONE
     Indication: PEMPHIGUS
     Route: 048
  7. EDIROL [Concomitant]
     Active Substance: ELDECALCITOL
     Indication: OSTEOPOROSIS
     Route: 048
  8. NAUZELIN [Concomitant]
     Active Substance: DOMPERIDONE
     Indication: PROPHYLAXIS OF NAUSEA AND VOMITING
     Route: 048
  9. RINDERON V [Concomitant]
     Active Substance: BETAMETHASONE VALERATE
     Indication: PEMPHIGUS
  10. ALDACTONE A [Concomitant]
     Active Substance: SPIRONOLACTONE
     Indication: CARDIAC FAILURE
     Route: 065
  11. IMURAN [Concomitant]
     Active Substance: AZATHIOPRINE
     Indication: PEMPHIGUS
     Route: 048
  12. BONALON [Concomitant]
     Active Substance: ALENDRONATE SODIUM
     Indication: OSTEOPOROSIS
     Route: 048
  13. NEXIUM [Concomitant]
     Active Substance: ESOMEPRAZOLE MAGNESIUM
     Indication: GASTRITIS PROPHYLAXIS
     Route: 048
  14. TANATRIL [Concomitant]
     Active Substance: IMIDAPRIL
     Indication: CARDIAC FAILURE
     Route: 048
  15. RITUXIMAB. [Suspect]
     Active Substance: RITUXIMAB
     Indication: PEMPHIGUS
     Route: 041
     Dates: start: 20181010, end: 20181010
  16. ZINC. [Concomitant]
     Active Substance: ZINC
     Indication: HYPOZINCAEMIA
     Route: 048
  17. LIDOMEX [Concomitant]
     Active Substance: PREDNISOLONE VALERATE ACETATE
     Indication: PEMPHIGUS

REACTIONS (3)
  - Radius fracture [Recovered/Resolved]
  - Cardiac failure [Recovering/Resolving]
  - Osteonecrosis [Recovering/Resolving]

NARRATIVE: CASE EVENT DATE: 20181211
